FAERS Safety Report 5313309-4 (Version None)
Quarter: 2007Q2

REPORT INFORMATION
  Report Type: 
  Country: None (occurrence: None)
  Receive Date: 20070501
  Receipt Date: 20070420
  Transmission Date: 20071010
  Serious: Yes (Hospitalization)
  Sender: FDA-Public Use
  Company Number: PHNU2007PL01605

PATIENT
  Weight: 110 kg

DRUGS (3)
  1. BETA BLOCKING AGENTS [Concomitant]
  2. DIURETICS [Concomitant]
  3. DIOVAN [Suspect]
     Dosage: 80 MG/D
     Route: 048

REACTIONS (2)
  - CHOLECYSTITIS ACUTE [None]
  - HYPERBILIRUBINAEMIA [None]
